FAERS Safety Report 6844507-6 (Version None)
Quarter: 2010Q2

REPORT INFORMATION
  Report Type: 
  Country: None (occurrence: None)
  Receive Date: 20100629
  Receipt Date: 20100429
  Transmission Date: 20101027
  Serious: No
  Sender: FDA-Public Use
  Company Number: US-WYE-H15013810

PATIENT
  Age: 19 Year
  Sex: Female
  Weight: 73.55 kg

DRUGS (1)
  1. PRISTIQ [Suspect]
     Indication: DEPRESSION
     Dosage: 50 MG 1X PER 1 DAY, ORAL
     Route: 048
     Dates: start: 20100401

REACTIONS (4)
  - BURNING SENSATION [None]
  - PAIN [None]
  - PRURITUS [None]
  - RASH MACULO-PAPULAR [None]
